FAERS Safety Report 5412241-5 (Version None)
Quarter: 2007Q3

REPORT INFORMATION
  Report Type: 
  Country: None (occurrence: None)
  Receive Date: 20070809
  Receipt Date: 20070726
  Transmission Date: 20080115
  Serious: Yes (Hospitalization)
  Sender: FDA-Public Use
  Company Number: CERZ-11812

PATIENT
  Age: 81 Year
  Sex: Female

DRUGS (1)
  1. CEREZYME [Suspect]
     Indication: GAUCHER'S DISEASE
     Dosage: 1800 UNITS Q2WKS IV
     Route: 042
     Dates: start: 19990422

REACTIONS (6)
  - BONE PAIN [None]
  - CONTUSION [None]
  - FALL [None]
  - GROIN PAIN [None]
  - MUSCULOSKELETAL CHEST PAIN [None]
  - OEDEMA PERIPHERAL [None]
